FAERS Safety Report 8696112 (Version 2)
Quarter: 2013Q4

REPORT INFORMATION
  Report Type: Spontaneous
  Country: US (occurrence: US)
  Receive Date: 20120801
  Receipt Date: 20131101
  Transmission Date: 20140711
  Serious: No
  Sender: FDA-Public Use
  Company Number: US-009507513-1207USA009741

PATIENT
  Sex: Female

DRUGS (16)
  1. ZOCOR [Suspect]
     Route: 048
  2. ZETIA [Suspect]
     Route: 048
  3. ARTHROTEC [Suspect]
     Route: 048
  4. AMOXICILLIN [Suspect]
     Dosage: 0.5, QD
  5. OXACILLIN SODIUM [Suspect]
  6. SULFAMETHOXAZOLE [Suspect]
  7. CEFZIL [Suspect]
  8. BIAXIN [Suspect]
  9. PCE [Suspect]
  10. ULTRAM [Suspect]
  11. LORTAB [Suspect]
  12. PRAVACHOL [Suspect]
  13. LIVALO [Suspect]
  14. AMBIEN CR [Suspect]
  15. PROVIGIL [Suspect]
  16. LIPITOR [Suspect]
     Route: 048

REACTIONS (1)
  - Drug hypersensitivity [Unknown]
